FAERS Safety Report 4319135-7 (Version None)
Quarter: 2004Q1

REPORT INFORMATION
  Report Type: 
  Country: None (occurrence: None)
  Receive Date: 20040318
  Receipt Date: 20040309
  Transmission Date: 20041129
  Serious: Yes (Other)
  Sender: FDA-Public Use
  Company Number: WAES 0403USA01152

PATIENT
  Age: 27 Year
  Sex: Female

DRUGS (1)
  1. STROMECTOL [Suspect]
     Indication: ONCHOCERCIASIS
     Route: 048

REACTIONS (2)
  - GENERAL PHYSICAL HEALTH DETERIORATION [None]
  - RETINAL HAEMORRHAGE [None]
